FAERS Safety Report 24240331 (Version 1)
Quarter: 2024Q3

REPORT INFORMATION
  Report Type: Spontaneous
  Country: US (occurrence: US)
  Receive Date: 20240822
  Receipt Date: 20240822
  Transmission Date: 20241016
  Serious: No
  Sender: Harrow Health
  Company Number: US-IMP-2024000613

PATIENT
  Sex: Female

DRUGS (1)
  1. VEVYE [Suspect]
     Active Substance: CYCLOSPORINE
     Indication: Product used for unknown indication
     Route: 065

REACTIONS (1)
  - Instillation site irritation [Unknown]

NARRATIVE: CASE EVENT DATE: 20240101
